FAERS Safety Report 18254530 (Version 1)
Quarter: 2020Q3

REPORT INFORMATION
  Report Type: Spontaneous
  Country: US (occurrence: US)
  Receive Date: 20200910
  Receipt Date: 20200910
  Transmission Date: 20201103
  Serious: No
  Sender: FDA-Public Use
  Company Number: US-TEVA-2020-US-1827063

PATIENT
  Age: 78 Year
  Sex: Male
  Weight: 74.8 kg

DRUGS (2)
  1. CARBIDOPA/LEVODOPA [Concomitant]
     Active Substance: CARBIDOPA\LEVODOPA
     Indication: PARKINSON^S DISEASE
     Route: 065
  2. RASAGILINE. [Suspect]
     Active Substance: RASAGILINE
     Dosage: 1 MG, 1X/DAY IN THE MORNING, ORAL
     Route: 048
     Dates: start: 20200809, end: 20200811

REACTIONS (5)
  - Mood swings [Recovered/Resolved]
  - Chills [Recovered/Resolved]
  - Agitation [Recovered/Resolved]
  - Dyskinesia [Recovered/Resolved]
  - Tremor [Recovered/Resolved]

NARRATIVE: CASE EVENT DATE: 20200810
